FAERS Safety Report 5020638-0 (Version None)
Quarter: 2006Q2

REPORT INFORMATION
  Report Type: 
  Country: None (occurrence: None)
  Receive Date: 20060602
  Receipt Date: 20060524
  Transmission Date: 20061013
  Serious: Yes (Other)
  Sender: FDA-Public Use
  Company Number: 225537

PATIENT
  Sex: Male

DRUGS (1)
  1. XOLAIR [Suspect]

REACTIONS (1)
  - CARDIOMYOPATHY [None]
